FAERS Safety Report 21818944 (Version 1)
Quarter: 2023Q1

REPORT INFORMATION
  Report Type: Spontaneous
  Country: US (occurrence: US)
  Receive Date: 20230104
  Receipt Date: 20230104
  Transmission Date: 20230417
  Serious: No
  Sender: FDA-Public Use
  Company Number: US-PFIZER INC-202201402854

PATIENT
  Age: 45 Year
  Sex: Male
  Weight: 127.01 kg

DRUGS (1)
  1. CYTOMEL [Suspect]
     Active Substance: LIOTHYRONINE SODIUM
     Indication: Autoimmune thyroiditis
     Dosage: 1X/DAY (MCG OR 12MG HE THINKS IT IS MCG , ONCE IN MORNING)
     Dates: end: 2022

REACTIONS (6)
  - Product prescribing error [Unknown]
  - Off label use [Unknown]
  - Abdominal distension [Not Recovered/Not Resolved]
  - Eructation [Not Recovered/Not Resolved]
  - Abdominal pain upper [Not Recovered/Not Resolved]
  - Constipation [Not Recovered/Not Resolved]
